FAERS Safety Report 18477928 (Version 1)
Quarter: 2020Q4

REPORT INFORMATION
  Report Type: Spontaneous
  Country: CN (occurrence: CN)
  Receive Date: 20201108
  Receipt Date: 20201108
  Transmission Date: 20210114
  Serious: Yes (Other)
  Sender: FDA-Public Use
  Company Number: CN-BAXTER-2020BAX022474

PATIENT
  Age: 69 Year
  Sex: Female
  Weight: 71 kg

DRUGS (5)
  1. ENDOXAN [Suspect]
     Active Substance: CYCLOPHOSPHAMIDE
     Indication: BREAST CANCER FEMALE
     Dosage: CYCLOPHOSPHAMIDE 950 MG + NS 50ML, FIRST CHEMOTHERAPY
     Route: 042
     Dates: start: 20200810, end: 20200810
  2. JINYOULI [Concomitant]
     Active Substance: ANF-RHO
     Indication: PROPHYLAXIS
     Dosage: ON THE SECOND DAY
     Route: 058
     Dates: start: 20200811
  3. 0.9% SODIUM CHLORIDE INJECTION [Suspect]
     Active Substance: SODIUM CHLORIDE
     Dosage: PHARMORUBICIN 140 MG + NS 100 ML, FIRST CHEMOTHERAPY
     Route: 041
     Dates: start: 20200810, end: 20200810
  4. PHARMORUBICIN [Suspect]
     Active Substance: EPIRUBICIN
     Indication: BREAST CANCER FEMALE
     Dosage: PHARMORUBICIN 140 MG + NS 100ML, FIRST CHEMOTHERAPY
     Route: 041
     Dates: start: 20200810, end: 20200810
  5. 0.9% SODIUM CHLORIDE INJECTION [Suspect]
     Active Substance: SODIUM CHLORIDE
     Indication: MEDICATION DILUTION
     Dosage: CYCLOPHOSPHAMIDE 950 MG + NS 50 ML, FIRST CHEMOTHERAPY
     Route: 042
     Dates: start: 20200810, end: 20200810

REACTIONS (1)
  - Agranulocytosis [Recovered/Resolved]

NARRATIVE: CASE EVENT DATE: 20200822
